FAERS Safety Report 11486625 (Version 6)
Quarter: 2016Q3

REPORT INFORMATION
  Report Type: Spontaneous
  Country: US (occurrence: US)
  Receive Date: 20150910
  Receipt Date: 20160712
  Transmission Date: 20161109
  Serious: No
  Sender: FDA-Public Use
  Company Number: US-PFIZER INC-2015285700

PATIENT
  Age: 66 Year
  Sex: Female

DRUGS (14)
  1. LASIX [Concomitant]
     Active Substance: FUROSEMIDE
  2. ISOSORBIDE. [Concomitant]
     Active Substance: ISOSORBIDE
  3. IBRANCE [Suspect]
     Active Substance: PALBOCICLIB
     Indication: BREAST CANCER
     Dosage: 100 MG (1 TABLET), DAILY, CYCLIC (3 WEEKS ON AND 1 WEEK OFF) DAILY
     Dates: start: 20150416
  4. IBRANCE [Suspect]
     Active Substance: PALBOCICLIB
     Dosage: UNK
  5. SINGULAIR [Concomitant]
     Active Substance: MONTELUKAST SODIUM
  6. DULOXETINE. [Concomitant]
     Active Substance: DULOXETINE
  7. ANASTROZOLE. [Concomitant]
     Active Substance: ANASTROZOLE
  8. METHIMAZOLE. [Concomitant]
     Active Substance: METHIMAZOLE
     Dosage: UNK
  9. OXYCODONE [Concomitant]
     Active Substance: OXYCODONE
  10. POTASSIUM [Concomitant]
     Active Substance: POTASSIUM
  11. WARFARIN [Concomitant]
     Active Substance: WARFARIN
  12. LOSARTAN. [Concomitant]
     Active Substance: LOSARTAN
     Dosage: UNK
  13. FEMARA [Concomitant]
     Active Substance: LETROZOLE
  14. TYLENOL [Concomitant]
     Active Substance: ACETAMINOPHEN

REACTIONS (6)
  - Influenza like illness [Recovered/Resolved]
  - Fungal infection [Unknown]
  - Cataract [Unknown]
  - Rash [Unknown]
  - Nausea [Recovered/Resolved]
  - Reversed hot-cold sensation [Recovered/Resolved]
